FAERS Safety Report 25124353 (Version 1)
Quarter: 2025Q1

REPORT INFORMATION
  Report Type: Spontaneous
  Country: US (occurrence: None)
  Receive Date: 20250326
  Receipt Date: 20250326
  Transmission Date: 20250409
  Serious: Yes (Other)
  Sender: FDA-CTU
  Company Number: None

PATIENT
  Age: 86 Year
  Sex: Male

DRUGS (11)
  1. LENALIDOMIDE [Suspect]
     Active Substance: LENALIDOMIDE
     Indication: Plasma cell myeloma
     Dosage: OTHER QUANTITY : 1DOSEAGE;?FREQUENCY : DAILY;?
     Route: 048
     Dates: start: 20221020
  2. ACYCLOVIR [Concomitant]
     Active Substance: ACYCLOVIR
  3. ASPIRIN TAB 325MG [Concomitant]
  4. ATORVASTATIN TAB 10MG [Concomitant]
  5. DARZALEX [Concomitant]
     Active Substance: DARATUMUMAB
  6. DEXAMETHASONE [Concomitant]
     Active Substance: DEXAMETHASONE
  7. LENALIDOMIDE [Concomitant]
     Active Substance: LENALIDOMIDE
  8. MULTIVITAMIN TAB [Concomitant]
  9. MULTIVITAMIN TAB ADULTS [Concomitant]
  10. VIAGRA TAB 25MG [Concomitant]
  11. VITAMIN B-12TAB 500MCG [Concomitant]

REACTIONS (1)
  - Platelet count decreased [None]

NARRATIVE: CASE EVENT DATE: 20241001
